FAERS Safety Report 13176175 (Version 2)
Quarter: 2017Q1

REPORT INFORMATION
  Report Type: Report from Study
  Country: IL (occurrence: IL)
  Receive Date: 20170201
  Receipt Date: 20170207
  Transmission Date: 20170428
  Serious: No
  Sender: FDA-Public Use
  Company Number: IL-JNJFOC-20170127940

PATIENT
  Sex: Female

DRUGS (2)
  1. STELARA [Suspect]
     Active Substance: USTEKINUMAB
     Indication: PSORIASIS
     Route: 058
  2. DERMOVATE [Concomitant]
     Active Substance: CLOBETASOL
     Route: 065

REACTIONS (3)
  - Pruritus [Recovering/Resolving]
  - Drug ineffective [Unknown]
  - Psoriasis [Recovering/Resolving]
